FAERS Safety Report 14334092 (Version 3)
Quarter: 2018Q2

REPORT INFORMATION
  Report Type: Spontaneous
  Country: US (occurrence: US)
  Receive Date: 20171228
  Receipt Date: 20180501
  Transmission Date: 20180711
  Serious: Yes (Other)
  Sender: FDA-Public Use
  Company Number: PHEH2017US040276

PATIENT
  Sex: Male

DRUGS (5)
  1. ALPRAZOLAM SANDOZ [Suspect]
     Active Substance: ALPRAZOLAM
     Dosage: UNK UNK, BID
     Route: 048
     Dates: start: 201801
  2. ALPRAZOLAM SANDOZ [Suspect]
     Active Substance: ALPRAZOLAM
     Indication: ANXIETY
     Dosage: 0.5 MG, TID
     Route: 048
  3. ALPRAZOLAM SANDOZ [Suspect]
     Active Substance: ALPRAZOLAM
     Indication: NERVOUS SYSTEM DISORDER
     Dosage: 0.5 MG, QID
     Route: 048
     Dates: start: 20171125
  4. XANAX [Concomitant]
     Active Substance: ALPRAZOLAM
     Indication: PRODUCT USED FOR UNKNOWN INDICATION
     Dosage: UNK
     Route: 065
  5. HYDROXYZINE [Concomitant]
     Active Substance: HYDROXYZINE HYDROCHLORIDE
     Indication: NERVOUS SYSTEM DISORDER
     Dosage: UNK (50MG IN THE MORNING AND ONE BEFORE BEDTIM)
     Route: 048
     Dates: start: 2017

REACTIONS (9)
  - Drug ineffective [Not Recovered/Not Resolved]
  - Product odour abnormal [Not Recovered/Not Resolved]
  - Wrong technique in product usage process [Unknown]
  - Gastrointestinal disorder [Unknown]
  - Gait inability [Unknown]
  - Hepatitis C [Not Recovered/Not Resolved]
  - Paraesthesia [Unknown]
  - Hepatitis B [Not Recovered/Not Resolved]
  - Inappropriate schedule of drug administration [Not Recovered/Not Resolved]
